FAERS Safety Report 5896658-0 (Version None)
Quarter: 2008Q3

REPORT INFORMATION
  Report Type: 
  Country: None (occurrence: None)
  Receive Date: 20080924
  Receipt Date: 20071003
  Transmission Date: 20090109
  Serious: No
  Sender: FDA-Public Use
  Company Number: US-BAYER-200713637BWH

PATIENT
  Sex: Female

DRUGS (3)
  1. AVELOX [Suspect]
     Indication: UNEVALUABLE EVENT
     Route: 048
  2. PREDNISONE [Concomitant]
     Indication: DRUG HYPERSENSITIVITY
  3. BENADRYL [Concomitant]
     Indication: DRUG HYPERSENSITIVITY

REACTIONS (2)
  - ASTHENIA [None]
  - CONFUSIONAL STATE [None]
